FAERS Safety Report 4416504-1 (Version None)
Quarter: 2004Q2

REPORT INFORMATION
  Report Type: 
  Country: None (occurrence: None)
  Receive Date: 20040630
  Receipt Date: 20040427
  Transmission Date: 20050107
  Serious: Yes (Hospitalization)
  Sender: FDA-Public Use
  Company Number: 03P-163-0245964-00

PATIENT
  Age: 54 Year
  Sex: Female
  Weight: 92.5338 kg

DRUGS (5)
  1. HUMIRA [Suspect]
     Indication: RHEUMATOID ARTHRITIS
     Dosage: 40 MG, 1 IN 2 WK, SUBCUTANEOUS
     Route: 058
     Dates: start: 20030919, end: 20031104
  2. LEFLUNOMIDE [Suspect]
     Dosage: 20 MG, 1 IN 1 D
     Dates: start: 20010101, end: 20031101
  3. MELOXICAM [Concomitant]
  4. METHADONE HCL [Concomitant]
  5. GABAPENTIN [Concomitant]

REACTIONS (1)
  - ARTHRITIS INFECTIVE [None]
